FAERS Safety Report 8784119 (Version 2)
Quarter: 2013Q4

REPORT INFORMATION
  Report Type: Spontaneous
  Country: JP (occurrence: JP)
  Receive Date: 20120913
  Receipt Date: 20131031
  Transmission Date: 20140711
  Serious: Yes (Other)
  Sender: FDA-Public Use
  Company Number: JP-MERCK-1209JPN004548

PATIENT
  Sex: Female

DRUGS (3)
  1. GASTER [Suspect]
     Indication: GASTROENTERITIS
     Dosage: 40 MG, QD
     Route: 048
  2. BIO THREE [Concomitant]
  3. LOPEMIN [Concomitant]
     Route: 048

REACTIONS (2)
  - Malaise [Unknown]
  - Nausea [Unknown]
